FAERS Safety Report 8244807-1 (Version None)
Quarter: 2012Q1

REPORT INFORMATION
  Report Type: 
  Country: None (occurrence: None)
  Receive Date: 20120329
  Receipt Date: 20110427
  Transmission Date: 20120608
  Serious: No
  Sender: FDA-Public Use
  Company Number: US-MYLANLABS-2011S1008712

PATIENT
  Age: 57 Year
  Sex: Male

DRUGS (1)
  1. FENTANYL-100 [Suspect]
     Indication: MUSCLE DISORDER
     Dosage: CHANGED Q48H.
     Route: 062
     Dates: start: 20110101

REACTIONS (4)
  - DRUG INEFFECTIVE FOR UNAPPROVED INDICATION [None]
  - PAIN [None]
  - WITHDRAWAL SYNDROME [None]
  - MUSCLE SPASMS [None]
